FAERS Safety Report 8347885-4 (Version None)
Quarter: 2012Q2

REPORT INFORMATION
  Report Type: 
  Country: None (occurrence: None)
  Receive Date: 20120509
  Receipt Date: 20120503
  Transmission Date: 20120825
  Serious: Yes (Death)
  Sender: FDA-Public Use
  Company Number: US-BAYER-2012-043089

PATIENT
  Age: 61 Year
  Sex: Female

DRUGS (5)
  1. VITAMIN C [Concomitant]
     Dosage: 1000 MG, UNK
  2. BACLOFEN [Concomitant]
     Dosage: 10 MG, UNK
  3. BETASERON [Suspect]
     Dosage: 0.25 MG, QOD
     Route: 058
  4. POTASSIUM CHLORIDE [Concomitant]
     Dosage: 10 MEQ, UNK
  5. VITAMIN D [Concomitant]
     Dosage: 1000 U, UNK

REACTIONS (1)
  - DEATH [None]
